FAERS Safety Report 11868598 (Version 3)
Quarter: 2016Q1

REPORT INFORMATION
  Report Type: Spontaneous
  Country: JP (occurrence: JP)
  Receive Date: 20151225
  Receipt Date: 20160311
  Transmission Date: 20160526
  Serious: Yes (Hospitalization, Other)
  Sender: FDA-Public Use
  Company Number: JP-ASTRAZENECA-2015SF30614

PATIENT
  Age: 74 Year
  Sex: Female
  Weight: 41 kg

DRUGS (3)
  1. MYSLEE [Concomitant]
     Active Substance: ZOLPIDEM TARTRATE
     Dates: start: 20110811, end: 20131031
  2. SEROQUEL [Suspect]
     Active Substance: QUETIAPINE FUMARATE
     Indication: DELUSION
     Route: 048
     Dates: start: 20130912, end: 20130914
  3. DANTRIUM [Concomitant]
     Active Substance: DANTROLENE SODIUM
     Dates: start: 20130919, end: 20130921

REACTIONS (5)
  - Neuroleptic malignant syndrome [Recovered/Resolved]
  - Pneumonia [Recovered/Resolved]
  - Off label use [Recovered/Resolved]
  - Parkinsonism [Recovering/Resolving]
  - Product use issue [Recovered/Resolved]

NARRATIVE: CASE EVENT DATE: 20130912
